FAERS Safety Report 9597217 (Version 1)
Quarter: 2013Q4

REPORT INFORMATION
  Report Type: Spontaneous
  Country: US (occurrence: US)
  Receive Date: 20131004
  Receipt Date: 20131004
  Transmission Date: 20140711
  Serious: No
  Sender: FDA-Public Use
  Company Number: US-AMGEN-USASP2013017849

PATIENT
  Age: 48 Year
  Sex: Male
  Weight: 113.38 kg

DRUGS (6)
  1. ENBREL [Suspect]
     Indication: PRODUCT USED FOR UNKNOWN INDICATION
     Dosage: 50 MG/ML, QWK
     Route: 058
  2. WELLBUTRIN [Concomitant]
     Dosage: 75 MG, UNK
  3. LEXAPRO [Concomitant]
     Dosage: 5 MG, UNK
  4. MULTIVITAMINS, PLAIN [Concomitant]
     Dosage: UNK
  5. CELEBREX [Concomitant]
     Dosage: 50 MG, UNK
  6. ZYRTEC [Concomitant]
     Dosage: 10 MG, UNK

REACTIONS (1)
  - Drug ineffective [Unknown]
